FAERS Safety Report 4920029-4 (Version None)
Quarter: 2006Q1

REPORT INFORMATION
  Report Type: 
  Country: None (occurrence: None)
  Receive Date: 20060223
  Receipt Date: 20060119
  Transmission Date: 20060701
  Serious: Yes (Hospitalization, Other)
  Sender: FDA-Public Use
  Company Number: GB-GILEAD-2006-0009147

PATIENT
  Sex: Male
  Weight: 56 kg

DRUGS (4)
  1. VIREAD [Suspect]
     Route: 048
  2. REYATAZ [Concomitant]
     Route: 048
     Dates: start: 20040601
  3. RITONAVIR [Concomitant]
     Route: 048
     Dates: start: 20040601
  4. DIDANOSINE [Concomitant]
     Route: 048
     Dates: start: 20040601, end: 20051201

REACTIONS (11)
  - BLOOD PHOSPHORUS DECREASED [None]
  - DEHYDRATION [None]
  - FANCONI SYNDROME ACQUIRED [None]
  - FATIGUE [None]
  - METABOLIC ACIDOSIS [None]
  - NEPHROGENIC DIABETES INSIPIDUS [None]
  - POLYDIPSIA [None]
  - POLYURIA [None]
  - RENAL TUBULAR ACIDOSIS [None]
  - RENAL TUBULAR NECROSIS [None]
  - WEIGHT DECREASED [None]
